FAERS Safety Report 24872732 (Version 1)
Quarter: 2025Q1

REPORT INFORMATION
  Report Type: Spontaneous
  Country: IQ (occurrence: IQ)
  Receive Date: 20250122
  Receipt Date: 20250122
  Transmission Date: 20250408
  Serious: Yes (Other)
  Sender: SANOFI AVENTIS
  Company Number: IQ-SA-2025SA017712

PATIENT
  Age: 59 Year
  Sex: Female

DRUGS (3)
  1. SARCLISA [Suspect]
     Active Substance: ISATUXIMAB-IRFC
     Indication: Plasma cell myeloma refractory
     Dosage: 10 MG/KG, QW (10MG/KG WEEKLY AT FIRST CYCLE (28 DAY CYCLE) THEN BIWEEKLY AFTER THAT)
     Route: 042
     Dates: start: 20241126, end: 20241210
  2. KYPROLIS [Concomitant]
     Active Substance: CARFILZOMIB
     Indication: Plasma cell myeloma refractory
     Dosage: 70 MG/M2, QW
     Route: 042
     Dates: start: 20241126, end: 20241210
  3. DEXAMETHASONE [Concomitant]
     Active Substance: DEXAMETHASONE
     Indication: Plasma cell myeloma refractory
     Dosage: 40 MG, QW
     Route: 048
     Dates: start: 20241126

REACTIONS (3)
  - Tachycardia [Unknown]
  - Chest discomfort [Unknown]
  - Palpitations [Unknown]

NARRATIVE: CASE EVENT DATE: 20240101
